FAERS Safety Report 7861070-1 (Version None)
Quarter: 2011Q4

REPORT INFORMATION
  Report Type: 
  Country: None (occurrence: None)
  Receive Date: 20111027
  Receipt Date: 20111025
  Transmission Date: 20120403
  Serious: Yes (Death, Congenital Anomaly)
  Sender: FDA-Public Use
  Company Number: DK-GLAXOSMITHKLINE-B0757567B

PATIENT
  Sex: Male

DRUGS (1)
  1. PAROXETINE HCL [Suspect]
     Indication: DEPRESSION
     Route: 064
     Dates: start: 20040922

REACTIONS (2)
  - ASPHYXIA [None]
  - MATERNAL EXPOSURE DURING PREGNANCY [None]
